FAERS Safety Report 23904852 (Version 1)
Quarter: 2024Q2

REPORT INFORMATION
  Report Type: Spontaneous
  Country: US (occurrence: US)
  Receive Date: 20240527
  Receipt Date: 20240527
  Transmission Date: 20240715
  Serious: No
  Sender: FDA-Public Use
  Company Number: US-ELI_LILLY_AND_COMPANY-US202405011863

PATIENT
  Sex: Female

DRUGS (3)
  1. VERZENIO [Suspect]
     Active Substance: ABEMACICLIB
     Indication: Product used for unknown indication
     Dosage: 150 MG, BID
     Route: 065
     Dates: start: 202308
  2. VERZENIO [Suspect]
     Active Substance: ABEMACICLIB
     Dosage: 100 MG, UNKNOWN
     Route: 065
     Dates: start: 202308
  3. ZOMETA [Suspect]
     Active Substance: ZOLEDRONIC ACID
     Indication: Bone cancer
     Dosage: UNK UNK, UNKNOWN
     Route: 065

REACTIONS (6)
  - Synovial cyst [Unknown]
  - Abdominal pain upper [Unknown]
  - Muscle spasms [Unknown]
  - Vertigo positional [Unknown]
  - Constipation [Recovered/Resolved]
  - Diarrhoea [Unknown]
